FAERS Safety Report 6274248-8 (Version None)
Quarter: 2009Q3

REPORT INFORMATION
  Report Type: 
  Country: None (occurrence: None)
  Receive Date: 20090720
  Receipt Date: 20090713
  Transmission Date: 20100115
  Serious: Yes (Other)
  Sender: FDA-Public Use
  Company Number: US-PURDUE-USA_2008_0031092

PATIENT
  Age: 55 Year
  Sex: Female

DRUGS (4)
  1. OXYCONTIN [Suspect]
     Indication: BACK PAIN
     Dosage: 40 MG, SEE TEXT
     Route: 048
  2. NEURONTIN [Concomitant]
     Indication: RESTLESS LEGS SYNDROME
     Dosage: 100 MG, NOCTE
     Route: 048
  3. VALIUM [Concomitant]
     Indication: DEPRESSION
     Dosage: 10 MG, SEE TEXT
     Route: 048
  4. VALIUM [Concomitant]
     Indication: PANIC ATTACK

REACTIONS (18)
  - ACTIVITIES OF DAILY LIVING IMPAIRED [None]
  - BACK PAIN [None]
  - BURNING SENSATION [None]
  - CONNECTIVE TISSUE DISORDER [None]
  - DEPRESSION [None]
  - DRUG INEFFECTIVE [None]
  - DYSPEPSIA [None]
  - FATIGUE [None]
  - FURUNCLE [None]
  - HYPOAESTHESIA [None]
  - INSOMNIA [None]
  - INTERVERTEBRAL DISC DEGENERATION [None]
  - INTERVERTEBRAL DISC PROTRUSION [None]
  - JOINT RANGE OF MOTION DECREASED [None]
  - MENTAL DISORDER [None]
  - PAIN [None]
  - PAIN IN EXTREMITY [None]
  - SUICIDAL IDEATION [None]
